FAERS Safety Report 6915790-3 (Version None)
Quarter: 2010Q3

REPORT INFORMATION
  Report Type: 
  Country: None (occurrence: None)
  Receive Date: 20100810
  Receipt Date: 20100310
  Transmission Date: 20110219
  Serious: No
  Sender: FDA-Public Use
  Company Number: A0849502A

PATIENT
  Age: 79 Year
  Sex: Female

DRUGS (5)
  1. PAXIL [Suspect]
     Dosage: 1TAB PER DAY
     Route: 048
     Dates: start: 20050301, end: 20100101
  2. LORAZEPAM [Concomitant]
  3. PREMARIN [Concomitant]
  4. PLAVIX [Concomitant]
  5. TRIAMTERENE AND HYDROCHLOROTHIAZIDE [Concomitant]

REACTIONS (1)
  - HYPERHIDROSIS [None]
